FAERS Safety Report 4352974-5 (Version None)
Quarter: 2004Q2

REPORT INFORMATION
  Report Type: 
  Country: None (occurrence: None)
  Receive Date: 20040430
  Receipt Date: 20040115
  Transmission Date: 20050107
  Serious: No
  Sender: FDA-Public Use
  Company Number: 204302

PATIENT
  Age: 44 Year
  Sex: Female

DRUGS (3)
  1. XOLAIR [Suspect]
     Indication: ASTHMA
     Dosage: 225 MG, Q2W, SUBCUTANEOUS
     Route: 058
     Dates: start: 20031201, end: 20031230
  2. NEXIUM [Concomitant]
  3. IMITREX [Concomitant]

REACTIONS (2)
  - CONCUSSION [None]
  - FALL [None]
